FAERS Safety Report 6691986-3 (Version None)
Quarter: 2010Q2

REPORT INFORMATION
  Report Type: 
  Country: None (occurrence: None)
  Receive Date: 20100422
  Receipt Date: 20100412
  Transmission Date: 20101027
  Serious: Yes (Other)
  Sender: FDA-Public Use
  Company Number: CA-ROCHE-683938

PATIENT
  Sex: Male
  Weight: 98 kg

DRUGS (9)
  1. TOCILIZUMAB [Suspect]
     Indication: RHEUMATOID ARTHRITIS
     Dosage: TEMPORARILY STOPPED. DOSAGE FORM: INFUSION SOLUTION
     Route: 042
     Dates: start: 20081217
  2. TOCILIZUMAB [Suspect]
     Dosage: TEMPORARILY INTERRUPTED
     Route: 042
     Dates: start: 20091104, end: 20091202
  3. TOCILIZUMAB [Suspect]
     Dosage: IN MA21573 STUDY, FORM : VIAL
     Route: 042
  4. METHOTREXATE [Suspect]
     Indication: RHEUMATOID ARTHRITIS
     Route: 065
     Dates: start: 20060801
  5. REMICADE [Suspect]
     Indication: RHEUMATOID ARTHRITIS
     Route: 065
     Dates: start: 20030901, end: 20080918
  6. NEXIUM [Concomitant]
     Dates: start: 20080101
  7. FOLIC ACID [Concomitant]
     Dates: start: 20060101
  8. CALCIUM/VITAMIN D [Concomitant]
     Dates: start: 20060101
  9. GLUCOSAMINE SULFATE/CHONDROITIN [Concomitant]
     Dosage: DRUG NAME: GLUCOSAMINE+CHONDREITIN
     Dates: start: 20060101

REACTIONS (2)
  - INTERSTITIAL LUNG DISEASE [None]
  - THYMUS ENLARGEMENT [None]
